FAERS Safety Report 7903581-6 (Version None)
Quarter: 2011Q4

REPORT INFORMATION
  Report Type: 
  Country: None (occurrence: None)
  Receive Date: 20111109
  Receipt Date: 20111109
  Transmission Date: 20120403
  Serious: Yes (Hospitalization)
  Sender: FDA-Public Use
  Company Number: None

PATIENT
  Sex: Female
  Weight: 37.648 kg

DRUGS (2)
  1. ERLOTINIB HYDROCHLORIDE [Concomitant]
     Indication: BREAST CANCER METASTATIC
     Dosage: 150
     Route: 048
     Dates: start: 20110830, end: 20110924
  2. BEVACIZUMAB [Suspect]
     Indication: BREAST CANCER METASTATIC
     Dosage: 10 MG/KG
     Route: 042
     Dates: start: 20110331, end: 20110914

REACTIONS (2)
  - FEMORAL NECK FRACTURE [None]
  - FALL [None]
